FAERS Safety Report 8137749-3 (Version None)
Quarter: 2012Q1

REPORT INFORMATION
  Report Type: 
  Country: None (occurrence: None)
  Receive Date: 20120215
  Receipt Date: 20120202
  Transmission Date: 20120608
  Serious: Yes (Life-Threatening, Hospitalization)
  Sender: FDA-Public Use
  Company Number: JP-UCBSA-050742

PATIENT
  Age: 79 Year
  Sex: Female
  Weight: 52 kg

DRUGS (11)
  1. KEPPRA [Suspect]
     Indication: SIMPLE PARTIAL SEIZURES
     Route: 048
     Dates: start: 20110725
  2. EXFORGE [Concomitant]
     Dosage: DAILY DOSE: 1 DF
     Route: 048
  3. SULFAMETHOXAZOLE [Concomitant]
     Dosage: DAILY DOSE: 2 DF
     Route: 048
  4. FAMOTIDINE [Concomitant]
     Dosage: DAILYDOSE: 40 MG
     Route: 048
  5. VALPROATE SODIUM [Concomitant]
     Dosage: DAILY DOSE: 600 MG
     Route: 048
     Dates: start: 20110516, end: 20111031
  6. BETAMETHASONE [Concomitant]
     Dosage: DAILY DOSE: 0.5 MG
     Route: 048
  7. VALPROATE SODIUM [Concomitant]
     Indication: SIMPLE PARTIAL SEIZURES
     Dosage: DAILY DOSE: 800 MG
     Route: 048
     Dates: start: 20110428, end: 20110516
  8. PHENOBARBITAL TAB [Concomitant]
     Indication: SIMPLE PARTIAL SEIZURES
     Dosage: DAILY DOSE : 60 MG
     Route: 048
     Dates: start: 20111031
  9. NIDRAN [Suspect]
     Route: 042
  10. TEMODAL [Concomitant]
     Dosage: DAILY DOSE: 200 MG
     Route: 048
  11. RAMELTEON [Concomitant]
     Dosage: DAILY DOSE: 0.1 MG
     Route: 048

REACTIONS (2)
  - PLATELET COUNT DECREASED [None]
  - ADVERSE EVENT [None]
